FAERS Safety Report 4593915-5 (Version None)
Quarter: 2005Q1

REPORT INFORMATION
  Report Type: 
  Country: None (occurrence: None)
  Receive Date: 20050222
  Receipt Date: 20050209
  Transmission Date: 20050727
  Serious: Yes (Hospitalization)
  Sender: FDA-Public Use
  Company Number: 200510033BCA

PATIENT
  Age: 50 Year
  Sex: Male

DRUGS (3)
  1. GAMUNEX [Suspect]
     Indication: CHRONIC INFLAMMATORY DEMYELINATING POLYRADICULONEUROPATHY
     Dosage: SEE IMAGE, INTRAVENOUS
     Route: 042
     Dates: start: 20041125
  2. GAMUNEX [Suspect]
  3. GAMUNEX [Suspect]

REACTIONS (5)
  - BACK PAIN [None]
  - HYPOAESTHESIA [None]
  - MENINGITIS ASEPTIC [None]
  - PAIN IN EXTREMITY [None]
  - PARAESTHESIA [None]
